FAERS Safety Report 22100411 (Version 2)
Quarter: 2023Q1

REPORT INFORMATION
  Report Type: Report from Study
  Country: US (occurrence: US)
  Receive Date: 20230316
  Receipt Date: 20230317
  Transmission Date: 20230417
  Serious: Yes (Death)
  Sender: FDA-Public Use
  Company Number: US-ABBVIE-4342204

PATIENT
  Age: 20 Year
  Sex: Male
  Weight: 76 kg

DRUGS (6)
  1. VENCLEXTA [Suspect]
     Active Substance: VENETOCLAX
     Indication: Swelling
     Route: 048
  2. FULPHILA [Concomitant]
     Active Substance: PEGFILGRASTIM-JMDB
     Indication: Product used for unknown indication
  3. BLINCYTO [Concomitant]
     Active Substance: BLINATUMOMAB
     Indication: Product used for unknown indication
  4. RITUXAN [Suspect]
     Active Substance: RITUXIMAB
     Indication: Swelling
     Route: 065
     Dates: start: 20220117
  5. RITUXAN [Suspect]
     Active Substance: RITUXIMAB
     Indication: Swelling
     Route: 065
     Dates: start: 20220119
  6. BESPONSA [Concomitant]
     Active Substance: INOTUZUMAB OZOGAMICIN
     Indication: Product used for unknown indication

REACTIONS (2)
  - Death [Fatal]
  - Off label use [Unknown]

NARRATIVE: CASE EVENT DATE: 20230302
